FAERS Safety Report 8727244 (Version 2)
Quarter: 2012Q4

REPORT INFORMATION
  Report Type: 
  Country: TR (occurrence: TR)
  Receive Date: 20120816
  Receipt Date: 20120918
  Transmission Date: 20130627
  Serious: Yes (Hospitalization)
  Sender: FDA-Public Use
  Company Number: FR-PFIZER INC-K201100613

PATIENT
  Age: 78 Year
  Sex: Male

DRUGS (13)
  1. DELIX [Suspect]
     Indication: PRODUCT USED FOR UNKNOWN INDICATION
     Dosage: 2.5 mg, daily
     Route: 048
     Dates: start: 20110315
  2. ALDACTONE [Suspect]
     Indication: PRODUCT USED FOR UNKNOWN INDICATION
     Dosage: 100 mg, daily
     Route: 065
     Dates: start: 20110315
  3. FUROSEMIDE [Suspect]
     Indication: PRODUCT USED FOR UNKNOWN INDICATION
     Dosage: 20 mg, daily
     Route: 065
     Dates: start: 20110314
  4. FUROSEMIDE [Suspect]
     Dosage: 80 mg, UNK
     Route: 065
     Dates: start: 20110315
  5. ASPIRIN ALUMINUM\CAFFEINE\SALICYLAMIDE [Concomitant]
     Dosage: UNK
     Dates: start: 20110315
  6. PLAVIX [Concomitant]
     Dosage: UNK
     Dates: start: 20110314
  7. HEPARIN [Concomitant]
     Dosage: UNK
     Dates: start: 20110314, end: 20110315
  8. CONCOR [Concomitant]
     Dosage: UNK
     Dates: start: 20120315
  9. LIPITOR [Concomitant]
     Dosage: UNK
     Dates: start: 20110314
  10. FAMODIN [Concomitant]
     Dosage: UNK
     Dates: start: 20110314
  11. GLYCERYL TRINITRATE [Concomitant]
     Dosage: UNK
     Dates: start: 20110314, end: 20110315
  12. CEFTRIAXONE [Concomitant]
     Dosage: UNK
     Dates: start: 20110315, end: 20110322
  13. INSULIN [Concomitant]
     Dosage: UNK
     Dates: start: 20110315, end: 20110321

REACTIONS (1)
  - Renal failure acute [Recovered/Resolved]
